FAERS Safety Report 9482781 (Version 3)
Quarter: 2014Q2

REPORT INFORMATION
  Report Type: Spontaneous
  Country: US (occurrence: US)
  Receive Date: 20130828
  Receipt Date: 20140623
  Transmission Date: 20141212
  Serious: Yes (Other)
  Sender: FDA-Public Use
  Company Number: US-PFIZER INC-2013246527

PATIENT
  Age: 66 Year
  Sex: Female
  Weight: 54.42 kg

DRUGS (5)
  1. ZOLOFT [Suspect]
     Dosage: UNK
  2. CADUET [Suspect]
     Indication: HYPERTENSION
     Dosage: [AMLODIPINE BESILATE 5MG, ATORVASTATIN CALCIUM 20MG], DAILY
  3. CADUET [Suspect]
     Indication: BLOOD CHOLESTEROL ABNORMAL
  4. PANCRECARB MS-8 [Concomitant]
     Dosage: UNK
  5. GLIPIZIDE [Concomitant]
     Dosage: 2.5 MG, UNK

REACTIONS (1)
  - Pancreatic carcinoma [Recovered/Resolved]
